FAERS Safety Report 8592338-1 (Version None)
Quarter: 2012Q3

REPORT INFORMATION
  Report Type: 
  Country: None (occurrence: None)
  Receive Date: 20120814
  Receipt Date: 20120808
  Transmission Date: 20120928
  Serious: Yes (Life-Threatening, Other)
  Sender: FDA-Public Use
  Company Number: JP-SANOFI-AVENTIS-2012SA043136

PATIENT
  Age: 78 Year
  Sex: Female
  Weight: 73.1 kg

DRUGS (8)
  1. BEZAFIBRATE [Concomitant]
     Dosage: DOSE: 200
     Route: 048
  2. CEPHADOL [Concomitant]
     Indication: NEUROGENIC BLADDER
     Route: 048
  3. LANSOPRAZOLE [Concomitant]
     Indication: GASTRIC ULCER
     Dosage: DOSE: 15
     Route: 048
  4. DEPAS [Concomitant]
     Dosage: DOSE: 0.5
     Route: 048
  5. RHYTHMY [Concomitant]
     Dosage: DOSE: 1
     Route: 048
  6. UBRETID [Concomitant]
     Indication: NEUROGENIC BLADDER
     Dosage: DOSE: 5
     Route: 048
  7. AMARYL [Suspect]
     Indication: DIABETES MELLITUS
     Route: 048
     Dates: end: 20120612
  8. FUROSEMIDE [Concomitant]
     Indication: OEDEMA
     Dosage: DOSE: 20
     Route: 048

REACTIONS (24)
  - WHEEZING [None]
  - HYPOGLYCAEMIA [None]
  - DECREASED APPETITE [None]
  - PYREXIA [None]
  - FEELING COLD [None]
  - CONSTIPATION [None]
  - THIRST [None]
  - FEELING ABNORMAL [None]
  - NAUSEA [None]
  - MUSCULAR WEAKNESS [None]
  - RESTLESSNESS [None]
  - VOMITING [None]
  - URINARY INCONTINENCE [None]
  - FAECAL INCONTINENCE [None]
  - HALLUCINATION [None]
  - DEPRESSED LEVEL OF CONSCIOUSNESS [None]
  - SALIVARY HYPERSECRETION [None]
  - ABNORMAL BEHAVIOUR [None]
  - DIARRHOEA [None]
  - ABDOMINAL DISCOMFORT [None]
  - MALAISE [None]
  - DYSPRAXIA [None]
  - HAEMORRHAGE [None]
  - BREATH SOUNDS ABNORMAL [None]
